FAERS Safety Report 9425805 (Version 1)
Quarter: 2013Q3

REPORT INFORMATION
  Report Type: Report from Study
  Country: US (occurrence: US)
  Receive Date: 20130729
  Receipt Date: 20130729
  Transmission Date: 20140515
  Serious: Yes (Other)
  Sender: FDA-Public Use
  Company Number: US-ABBOTT-13P-163-1123443-00

PATIENT
  Age: 64 Year
  Sex: Male
  Weight: 122.58 kg

DRUGS (2)
  1. HUMIRA [Suspect]
     Indication: RHEUMATOID ARTHRITIS
     Dates: start: 2007, end: 201304
  2. HUMIRA [Suspect]
     Dates: start: 20130611

REACTIONS (1)
  - Hypoaesthesia [Recovering/Resolving]
